FAERS Safety Report 10982643 (Version 1)
Quarter: 2015Q2

REPORT INFORMATION
  Report Type: Spontaneous
  Country: US (occurrence: None)
  Receive Date: 20150402
  Receipt Date: 20150402
  Transmission Date: 20150821
  Serious: Yes (Hospitalization)
  Sender: FDA-Public Use
  Company Number: None

PATIENT
  Age: 79 Year
  Sex: Female
  Weight: 48.98 kg

DRUGS (12)
  1. MILK THISTLE [Concomitant]
     Active Substance: MILK THISTLE
  2. CIPROFLOXACIN. [Concomitant]
     Active Substance: CIPROFLOXACIN
  3. LACTULOSE. [Concomitant]
     Active Substance: LACTULOSE
  4. OXYGEN. [Concomitant]
     Active Substance: OXYGEN
  5. VITAMIN D [Concomitant]
     Active Substance: CHOLECALCIFEROL
  6. LEVOTHYROXINE [Concomitant]
     Active Substance: LEVOTHYROXINE
  7. HARVONI [Suspect]
     Active Substance: LEDIPASVIR\SOFOSBUVIR
     Indication: HEPATITIS C
     Route: 048
     Dates: start: 20141211, end: 20150305
  8. ZOFRAN [Concomitant]
     Active Substance: ONDANSETRON HYDROCHLORIDE
  9. CALCIUM [Concomitant]
     Active Substance: CALCIUM
  10. LASIX [Concomitant]
     Active Substance: FUROSEMIDE
  11. SPIRONOLACTONE. [Concomitant]
     Active Substance: SPIRONOLACTONE
  12. OXYCODONE [Concomitant]
     Active Substance: OXYCODONE

REACTIONS (3)
  - Hepatorenal syndrome [None]
  - Hyperkalaemia [None]
  - Hyponatraemia [None]

NARRATIVE: CASE EVENT DATE: 20141219
